FAERS Safety Report 11917506 (Version 1)
Quarter: 2016Q1

REPORT INFORMATION
  Report Type: Spontaneous
  Country: US (occurrence: US)
  Receive Date: 20160114
  Receipt Date: 20160114
  Transmission Date: 20160526
  Serious: No
  Sender: FDA-Public Use
  Company Number: US-009507513-2006-03-1528

PATIENT
  Age: 24 Year
  Sex: Female

DRUGS (7)
  1. ELIMITE CREAM [Concomitant]
     Indication: LICE INFESTATION
     Dosage: 5 %, UNK
     Dates: start: 20060227
  2. MINERALS (UNSPECIFIED) (+) VITAMINS (UNSPECIFIED) [Concomitant]
     Dates: start: 20051010
  3. REBETOL [Suspect]
     Active Substance: RIBAVIRIN
     Indication: HEPATITIS C
     Dosage: DOSE: 1000 MG QD, DURATION: 11 MONTH(S)
     Route: 048
     Dates: start: 20040915, end: 20050815
  4. TYLENOL WITH CODEINE [Concomitant]
     Active Substance: ACETAMINOPHEN\CODEINE PHOSPHATE
     Indication: HEADACHE
     Dosage: UNK UNK, PRN
     Dates: start: 20051110
  5. TYLENOL [Concomitant]
     Active Substance: ACETAMINOPHEN
  6. TRICHLOROACETIC ACID [Concomitant]
     Active Substance: TRICHLOROACETIC ACID
     Indication: ANOGENITAL WARTS
     Dates: start: 20051010
  7. PEGINTRON [Suspect]
     Active Substance: PEGINTERFERON ALFA-2B
     Indication: HEPATITIS C
     Dosage: DOSE: 150 MCG QWK, DURATION: 11 MONTH(S)
     Dates: start: 20040915, end: 20050815

REACTIONS (2)
  - No adverse event [Unknown]
  - Exposure during pregnancy [Unknown]
